FAERS Safety Report 4828878-8 (Version None)
Quarter: 2005Q4

REPORT INFORMATION
  Report Type: 
  Country: None (occurrence: None)
  Receive Date: 20051116
  Receipt Date: 20051108
  Transmission Date: 20060501
  Serious: Yes (Hospitalization)
  Sender: FDA-Public Use
  Company Number: US-SP-2005-02386

PATIENT
  Age: 68 Year
  Sex: Male

DRUGS (2)
  1. THERACYS [Suspect]
     Indication: BLADDER CANCER
     Route: 043
     Dates: start: 20051026
  2. PNEUMOVAX 23 [Suspect]
     Route: 065

REACTIONS (1)
  - PYREXIA [None]
